FAERS Safety Report 8946072 (Version 2)
Quarter: 2013Q1

REPORT INFORMATION
  Report Type: Spontaneous
  Country: US (occurrence: US)
  Receive Date: 20121204
  Receipt Date: 20130213
  Transmission Date: 20140127
  Serious: Yes (Other)
  Sender: FDA-Public Use
  Company Number: US-AMGEN-USASP2012075161

PATIENT
  Age: 62 Year
  Sex: Female
  Weight: 78.91 kg

DRUGS (1)
  1. ENBREL [Suspect]
     Indication: SCLERODERMA
     Dosage: 50 MG, QWK
     Dates: start: 20120606, end: 20121003

REACTIONS (1)
  - Liver function test abnormal [Not Recovered/Not Resolved]
